FAERS Safety Report 4665118-7 (Version None)
Quarter: 2005Q2

REPORT INFORMATION
  Report Type: 
  Country: None (occurrence: None)
  Receive Date: 20050517
  Receipt Date: 20050509
  Transmission Date: 20051028
  Serious: Yes (Life-Threatening, Hospitalization)
  Sender: FDA-Public Use
  Company Number: 2005051101

PATIENT
  Age: 36 Year
  Sex: Female
  Weight: 60 kg

DRUGS (17)
  1. SPIRONOLACTONE [Suspect]
     Indication: RIGHT VENTRICULAR FAILURE
     Dosage: SEE IMAGE
     Route: 048
     Dates: start: 20010323, end: 20010419
  2. SPIRONOLACTONE [Suspect]
     Indication: RIGHT VENTRICULAR FAILURE
     Dosage: SEE IMAGE
     Route: 048
     Dates: start: 20041014, end: 20041119
  3. WARFARIN POTASSIUM [Suspect]
     Indication: THROMBOSIS PROPHYLAXIS
     Dosage: 3.5-4.5 MG, ORAL
     Route: 048
     Dates: start: 19971015
  4. MAGNESIUM OXIDE [Concomitant]
  5. ACARDI (PIMOBENDAN) [Concomitant]
  6. MEXILETINE HYDROCHLORIDE [Concomitant]
  7. TANATRIL                              (IMIDAPRIL HYDROCHLORIDE) [Concomitant]
  8. LASIX [Concomitant]
  9. TORSEMIDE [Concomitant]
  10. DICHLOTRIDE             (HYDROCHLOROTHIAZIDE) [Concomitant]
  11. PURSENNID     (SENNA LEAF) [Concomitant]
  12. DOBUTAMINE HCL [Concomitant]
  13. FERROMIA (FERROUS CITRATE) [Concomitant]
  14. SLOW-K [Concomitant]
  15. CARVEDILOL [Concomitant]
  16. DIOVAN [Concomitant]
  17. SUPRECUR                                 (BUSERELIN ACETATE) [Concomitant]

REACTIONS (12)
  - BLOOD PRESSURE SYSTOLIC DECREASED [None]
  - BRAIN NATRIURETIC PEPTIDE INCREASED [None]
  - CONDITION AGGRAVATED [None]
  - DIZZINESS EXERTIONAL [None]
  - DIZZINESS POSTURAL [None]
  - DRUG INEFFECTIVE [None]
  - EPIGASTRIC DISCOMFORT [None]
  - HYPOKALAEMIA [None]
  - IRON DEFICIENCY ANAEMIA [None]
  - MENORRHAGIA [None]
  - SHOCK HAEMORRHAGIC [None]
  - YAWNING [None]
